FAERS Safety Report 23403836 (Version 1)
Quarter: 2024Q1

REPORT INFORMATION
  Report Type: Spontaneous
  Country: US (occurrence: None)
  Receive Date: 20240116
  Receipt Date: 20240116
  Transmission Date: 20240409
  Serious: No
  Sender: FDA-Public Use
  Company Number: 2024A005819

PATIENT
  Sex: Female

DRUGS (2)
  1. BYDUREON BCISE [Suspect]
     Active Substance: EXENATIDE
     Dosage: 2.0MG UNKNOWN
  2. BYDUREON [Suspect]
     Active Substance: EXENATIDE

REACTIONS (3)
  - Diabetes mellitus [Unknown]
  - Device malfunction [Unknown]
  - Incorrect dose administered [Unknown]
